FAERS Safety Report 7345468-6 (Version None)
Quarter: 2011Q1

REPORT INFORMATION
  Report Type: 
  Country: None (occurrence: None)
  Receive Date: 20110310
  Receipt Date: 20110301
  Transmission Date: 20110831
  Serious: Yes (Other)
  Sender: FDA-Public Use
  Company Number: US-ASTRAZENECA-2011SE11199

PATIENT
  Age: 39 Year
  Sex: Female
  Weight: 61.2 kg

DRUGS (8)
  1. PROPRANOLOL [Concomitant]
  2. SPIRIVA [Concomitant]
  3. TOPAMAX [Concomitant]
  4. FLOMAX [Concomitant]
  5. SYMBICORT [Concomitant]
     Route: 055
  6. CRESTOR [Suspect]
     Indication: HYPERCHOLESTEROLAEMIA
     Route: 048
     Dates: start: 20081101
  7. NEURONTIN [Concomitant]
     Dates: start: 20100701
  8. ASPIRIN [Concomitant]

REACTIONS (5)
  - TRANSIENT ISCHAEMIC ATTACK [None]
  - FALL [None]
  - CONVULSION [None]
  - MUSCLE SPASMS [None]
  - MUSCULAR WEAKNESS [None]
